FAERS Safety Report 6422299-2 (Version None)
Quarter: 2009Q4

REPORT INFORMATION
  Report Type: 
  Country: None (occurrence: None)
  Receive Date: 20091030
  Receipt Date: 20091023
  Transmission Date: 20100525
  Serious: Yes (Other)
  Sender: FDA-Public Use
  Company Number: US-JNJCH-2009028073

PATIENT
  Age: 3 Year
  Sex: Male
  Weight: 14.5 kg

DRUGS (2)
  1. CHILDREN'S ZYRTEC ALLERGY [Suspect]
     Indication: HYPERSENSITIVITY
     Dosage: TEXT:1 TEASPOONFUL ONCE A DAY
     Route: 048
     Dates: start: 20091023, end: 20091023
  2. ALBUTEROL [Concomitant]
     Indication: ASTHMA
     Dosage: TEXT:WHEN NEEDED
     Route: 065

REACTIONS (2)
  - ASTHMA [None]
  - HYPERSENSITIVITY [None]
